FAERS Safety Report 9837935 (Version 2)
Quarter: 2014Q2

REPORT INFORMATION
  Report Type: Spontaneous
  Country: US (occurrence: None)
  Receive Date: 20131205
  Receipt Date: 20140416
  Transmission Date: 20141212
  Serious: No
  Sender: FDA-Public Use
  Company Number: 163-POMAL-13103344

PATIENT
  Age: 76 Year
  Sex: Female
  Weight: 62.14 kg

DRUGS (10)
  1. POMALYST [Suspect]
     Indication: PLASMA CELL MYELOMA
     Dosage: 2 MG, 21 IN 28 D, PO
     Route: 048
     Dates: start: 20130626, end: 20131009
  2. ASPIRIN(ACETYLSALICYLIC ACID) [Concomitant]
  3. ATENOLOL(ATENOLOL) [Concomitant]
  4. CALCIUM 600+ D(LEKOVIT CA) [Concomitant]
  5. VITAMIN B12(CYANOCOBALAMIN) [Concomitant]
  6. HYDROCHLOROTHIAZIDE(HYDROCHLOROTHIAZIDE) [Concomitant]
  7. LEVOTHYROXINE SODIUM (LEVOTHYROXINE SODIUM) [Concomitant]
  8. POTASSIUM CHLORIDE(POTASSIUM CHLORIDE)(SUSTAINED-RELEASE CAPSULE) [Concomitant]
  9. DEXAMETHASONE(DEXAMETHASONE) [Concomitant]
  10. ZOLEDRONIC ACID (ZOLEDRONIC ACID) [Concomitant]

REACTIONS (2)
  - Alopecia [None]
  - Neuropathy peripheral [None]
